FAERS Safety Report 6213944-5 (Version None)
Quarter: 2009Q2

REPORT INFORMATION
  Report Type: 
  Country: None (occurrence: None)
  Receive Date: 20090602
  Receipt Date: 20090518
  Transmission Date: 20091009
  Serious: Yes (Other)
  Sender: FDA-Public Use
  Company Number: CHNY2008JP03070

PATIENT
  Age: 33 Year
  Sex: Female

DRUGS (3)
  1. NICOTINELL TTS (NICOTINE)                     TRANS-THERAPEUTIC-SYSTEM [Suspect]
     Dosage: 52.5 MG, QD, TRANSDERMAL ; 35 MG, QD, TRANSDERMAL
     Route: 062
     Dates: start: 20080601, end: 20080701
  2. NICOTINELL TTS (NICOTINE)                     TRANS-THERAPEUTIC-SYSTEM [Suspect]
     Dosage: 52.5 MG, QD, TRANSDERMAL ; 35 MG, QD, TRANSDERMAL
     Route: 062
     Dates: start: 20080701, end: 20080701
  3. LANSOPRAZOLE [Concomitant]

REACTIONS (3)
  - DERMATITIS CONTACT [None]
  - HEPATIC FUNCTION ABNORMAL [None]
  - LIVER DISORDER [None]
